FAERS Safety Report 19117862 (Version 7)
Quarter: 2021Q4

REPORT INFORMATION
  Report Type: Report from Study
  Country: US (occurrence: US)
  Receive Date: 20210409
  Receipt Date: 20211104
  Transmission Date: 20220303
  Serious: Yes (Hospitalization, Other)
  Sender: FDA-Public Use
  Company Number: US-GILEAD-2021-0524554

PATIENT
  Age: 32 Year
  Sex: Male

DRUGS (57)
  1. REMDESIVIR [Suspect]
     Active Substance: REMDESIVIR
     Indication: COVID-19
     Dosage: UNK UNK, QD
     Route: 042
     Dates: start: 20210302
  2. INFLIXIMAB [Suspect]
     Active Substance: INFLIXIMAB
     Indication: COVID-19
     Dosage: UNK, ONCE
     Route: 042
     Dates: start: 20210302
  3. PLACEBO [Suspect]
     Active Substance: UNSPECIFIED INGREDIENT
     Indication: COVID-19
     Dosage: UNK, ONCE
     Route: 042
     Dates: start: 20210302
  4. BACITRACIN [Concomitant]
     Active Substance: BACITRACIN
  5. BACLOFEN [Concomitant]
     Active Substance: BACLOFEN
  6. BENZYL ALCOHOL [Concomitant]
     Active Substance: BENZYL ALCOHOL
  7. SODIUM CHLORIDE [Concomitant]
     Active Substance: SODIUM CHLORIDE
  8. PENICILLIN G POTASSIUM [Concomitant]
     Active Substance: PENICILLIN G POTASSIUM
  9. CALCIUM CARBONATE [Concomitant]
     Active Substance: CALCIUM CARBONATE
  10. CALCIUM GLUCONATE [Concomitant]
     Active Substance: CALCIUM GLUCONATE
  11. CARVEDILOL [Concomitant]
     Active Substance: CARVEDILOL
  12. CEFEPIME [Concomitant]
     Active Substance: CEFEPIME HYDROCHLORIDE
  13. CEFTRIAXONE [Concomitant]
     Active Substance: CEFTRIAXONE
  14. CISATRACURIUM BESYLATE [Concomitant]
     Active Substance: CISATRACURIUM BESYLATE
  15. CODEINE [Concomitant]
     Active Substance: CODEINE
  16. GUAIFENESIN [Concomitant]
     Active Substance: GUAIFENESIN
  17. DEXAMETHASONE [Concomitant]
     Active Substance: DEXAMETHASONE
  18. DOCUSATE SODIUM [Concomitant]
     Active Substance: DOCUSATE SODIUM
  19. SENNOSIDES A AND B [Concomitant]
     Active Substance: SENNOSIDES A AND B
  20. ENOXAPARIN SODIUM [Concomitant]
     Active Substance: ENOXAPARIN SODIUM
  21. EUCALYPTUS GLOBULUS OIL;MENTHOL [Concomitant]
  22. FAMOTIDINE [Concomitant]
     Active Substance: FAMOTIDINE
  23. FENTANYL [Concomitant]
     Active Substance: FENTANYL
  24. FUROSEMIDE [Concomitant]
     Active Substance: FUROSEMIDE
  25. GABAPENTIN [Concomitant]
     Active Substance: GABAPENTIN
  26. HALOPERIDOL DECANOATE [Concomitant]
     Active Substance: HALOPERIDOL DECANOATE
  27. HYDROMORPHONE HYDROCHLORIDE [Concomitant]
     Active Substance: HYDROMORPHONE HYDROCHLORIDE
  28. HYPROMELLOSES [Concomitant]
     Active Substance: HYPROMELLOSES
  29. INSULIN NOS [Concomitant]
     Active Substance: INSULIN NOS
  30. IOHEXOL [Concomitant]
     Active Substance: IOHEXOL
  31. IPRATROPIUM BROMIDE [Concomitant]
     Active Substance: IPRATROPIUM BROMIDE
  32. ALBUTEROL SULFATE [Concomitant]
     Active Substance: ALBUTEROL SULFATE
  33. LABETALOL HYDROCHLORIDE [Concomitant]
     Active Substance: LABETALOL HYDROCHLORIDE
  34. PROBIOTICS NOS [Concomitant]
     Active Substance: PROBIOTICS NOS
  35. LEVETIRACETAM [Concomitant]
     Active Substance: LEVETIRACETAM
  36. LIDOCAINE [Concomitant]
     Active Substance: LIDOCAINE
  37. LOSARTAN POTASSIUM [Concomitant]
     Active Substance: LOSARTAN POTASSIUM
  38. RAMIPRIL [Concomitant]
     Active Substance: RAMIPRIL
  39. GADOTERATE MEGLUMINE [Concomitant]
     Active Substance: GADOTERATE MEGLUMINE
  40. MELATONIN [Concomitant]
     Active Substance: MELATONIN
  41. METRONIDAZOLE [Concomitant]
     Active Substance: METRONIDAZOLE
  42. VITAMINS NOS [Concomitant]
     Active Substance: VITAMINS
  43. MINERALS NOS [Concomitant]
     Active Substance: MINERALS
  44. MOMETASONE FUROATE [Concomitant]
     Active Substance: MOMETASONE FUROATE
  45. NALOXONE HYDROCHLORIDE [Concomitant]
     Active Substance: NALOXONE HYDROCHLORIDE
  46. NICARDIPINE HYDROCHLORIDE [Concomitant]
     Active Substance: NICARDIPINE HYDROCHLORIDE
  47. NOREPINEPHRINE BITARTRATE [Concomitant]
     Active Substance: NOREPINEPHRINE BITARTRATE
  48. POTASSIUM CHLORIDE [Concomitant]
     Active Substance: POTASSIUM CHLORIDE
  49. THIAMINE HYDROCHLORIDE [Concomitant]
     Active Substance: THIAMINE HYDROCHLORIDE
  50. TROPICAMIDE [Concomitant]
     Active Substance: TROPICAMIDE
  51. VALACYCLOVIR HYDROCHLORIDE [Concomitant]
     Active Substance: VALACYCLOVIR HYDROCHLORIDE
  52. VANCOMYCIN [Concomitant]
     Active Substance: VANCOMYCIN
     Indication: COVID-19
     Dosage: UNK
     Dates: start: 20210302
  53. BUPIVACAINE HYDROCHLORIDE AND EPINEPHRINE [Concomitant]
     Active Substance: BUPIVACAINE HYDROCHLORIDE\EPINEPHRINE BITARTRATE
  54. MENTHOL [Concomitant]
     Active Substance: MENTHOL
  55. OXYCODONE [Concomitant]
     Active Substance: OXYCODONE
  56. CEFIXIME [Concomitant]
     Active Substance: CEFIXIME
  57. BUPIVACAINE [Concomitant]
     Active Substance: BUPIVACAINE

REACTIONS (1)
  - Septic pulmonary embolism [Recovering/Resolving]

NARRATIVE: CASE EVENT DATE: 20210308
